FAERS Safety Report 4440416-0 (Version None)
Quarter: 2004Q3

REPORT INFORMATION
  Report Type: 
  Country: None (occurrence: None)
  Receive Date: 20040728
  Receipt Date: 20040308
  Transmission Date: 20050211
  Serious: No
  Sender: FDA-Public Use
  Company Number: USA040361331

PATIENT
  Age: 7 Year
  Sex: Male
  Weight: 34 kg

DRUGS (3)
  1. STRATTERA [Suspect]
     Dosage: 60 MG/1 DAY
     Dates: start: 20030701
  2. ALLEGRA [Concomitant]
  3. ALBUTEROL [Concomitant]

REACTIONS (5)
  - ASTHMA [None]
  - COUGH [None]
  - DYSPNOEA [None]
  - PRESCRIBED OVERDOSE [None]
  - WHEEZING [None]
